FAERS Safety Report 7967496-X (Version None)
Quarter: 2011Q4

REPORT INFORMATION
  Report Type: 
  Country: None (occurrence: None)
  Receive Date: 20111209
  Receipt Date: 20110222
  Transmission Date: 20120403
  Serious: No
  Sender: FDA-Public Use
  Company Number: US-GLAXOSMITHKLINE-A0914899A

PATIENT
  Age: 49 Year
  Sex: Female

DRUGS (5)
  1. AVANDAMET [Suspect]
     Indication: TYPE 2 DIABETES MELLITUS
     Dosage: 1TAB TWICE PER DAY
     Route: 048
     Dates: start: 20110208, end: 20110218
  2. CHOLESTEROL REDUCING AGENT [Concomitant]
     Indication: BLOOD CHOLESTEROL INCREASED
  3. EYE MEDICATION [Concomitant]
     Indication: CATARACT
  4. ACCUPRIL [Concomitant]
  5. HUMULIN R [Concomitant]

REACTIONS (1)
  - NAUSEA [None]
